FAERS Safety Report 9351560 (Version 1)
Quarter: 2013Q2

REPORT INFORMATION
  Report Type: Spontaneous
  Country: DE (occurrence: DE)
  Receive Date: 20130617
  Receipt Date: 20130617
  Transmission Date: 20140414
  Serious: No
  Sender: FDA-Public Use
  Company Number: PHHY2013DE052927

PATIENT
  Sex: Male

DRUGS (1)
  1. TASIGNA [Suspect]
     Dosage: UNK
     Dates: start: 20130326

REACTIONS (4)
  - Intervertebral disc protrusion [Unknown]
  - Dysgeusia [Unknown]
  - White blood cell count increased [Unknown]
  - Stomatitis [Unknown]
